FAERS Safety Report 16712544 (Version 1)
Quarter: 2019Q3

REPORT INFORMATION
  Report Type: Spontaneous
  Country: FR (occurrence: FR)
  Receive Date: 20190816
  Receipt Date: 20190816
  Transmission Date: 20191004
  Serious: Yes (Hospitalization)
  Sender: FDA-Public Use
  Company Number: FR-ANIPHARMA-2019-FR-000184

PATIENT
  Age: 67 Year
  Sex: Female

DRUGS (9)
  1. RILMENIDINE [Suspect]
     Active Substance: RILMENIDINE
     Dosage: 2 MG DAILY
     Route: 048
  2. NICARDIPINE [Suspect]
     Active Substance: NICARDIPINE
     Dosage: 50 MG DAILY
     Route: 048
  3. FUROSEMIDE. [Suspect]
     Active Substance: FUROSEMIDE
     Dosage: 40 MG DAILY
     Route: 048
  4. CANDESARTAN CILEXETIL. [Suspect]
     Active Substance: CANDESARTAN CILEXETIL
     Indication: HYPERTENSION
     Dosage: 4 MG DAILY
     Route: 048
  5. CATAPRESSAN [Suspect]
     Active Substance: CLONIDINE
     Dosage: 1 DF DAILY
     Route: 048
  6. ZOPICLONE [Suspect]
     Active Substance: ZOPICLONE
     Dosage: 3.75 MG DAILY
     Route: 048
  7. ALPRAZOLAM. [Suspect]
     Active Substance: ALPRAZOLAM
     Dosage: 1 MG DAILY
     Route: 048
  8. DIFFU K [Suspect]
     Active Substance: POTASSIUM CHLORIDE
     Dosage: 1800 MG DAILY
     Route: 048
  9. ESOMEPRAZOLE. [Suspect]
     Active Substance: ESOMEPRAZOLE MAGNESIUM
     Dosage: 20 MG DAILY
     Route: 048

REACTIONS (2)
  - Anxiety [Recovered/Resolved]
  - Delirium [Recovered/Resolved]

NARRATIVE: CASE EVENT DATE: 20190410
